FAERS Safety Report 24830136 (Version 1)
Quarter: 2025Q1

REPORT INFORMATION
  Report Type: Spontaneous
  Country: US (occurrence: None)
  Receive Date: 20250109
  Receipt Date: 20250109
  Transmission Date: 20250409
  Serious: Yes (Hospitalization)
  Sender: FDA-CTU
  Company Number: None

PATIENT
  Age: 5 Month
  Sex: Female

DRUGS (3)
  1. SYNAGIS [Suspect]
     Active Substance: PALIVIZUMAB
     Indication: Premature baby
     Dosage: FREQUENCY : MONTHLY;?
     Route: 030
     Dates: start: 202411
  2. EPINEPHRINE [Concomitant]
     Active Substance: EPINEPHRINE
  3. BLUNT FILTER NEEDL 18GX1-1/2 [Concomitant]

REACTIONS (2)
  - Respiratory syncytial virus infection [None]
  - Neonatal infection [None]

NARRATIVE: CASE EVENT DATE: 20250108
